FAERS Safety Report 7747277-2 (Version None)
Quarter: 2011Q3

REPORT INFORMATION
  Report Type: 
  Country: None (occurrence: None)
  Receive Date: 20110913
  Receipt Date: 20110911
  Transmission Date: 20111222
  Serious: Yes (Other)
  Sender: FDA-Public Use
  Company Number: US-PFIZER INC-2011213715

PATIENT
  Sex: Female
  Weight: 70.295 kg

DRUGS (1)
  1. CHANTIX [Suspect]
     Indication: SMOKING CESSATION THERAPY
     Dosage: 0.5 MG, DAILY
     Dates: start: 20110906, end: 20110910

REACTIONS (5)
  - SOMNOLENCE [None]
  - EYE PAIN [None]
  - VERTIGO [None]
  - DIZZINESS [None]
  - DYSSTASIA [None]
